FAERS Safety Report 5819446-X (Version None)
Quarter: 2008Q3

REPORT INFORMATION
  Report Type: 
  Country: None (occurrence: None)
  Receive Date: 20080723
  Receipt Date: 20080721
  Transmission Date: 20090109
  Serious: Yes (Life-Threatening)
  Sender: FDA-Public Use
  Company Number: GB-WYE-G01387208

PATIENT
  Sex: Female
  Weight: 80 kg

DRUGS (11)
  1. TAZOCIN [Suspect]
     Indication: BRONCHIECTASIS
     Dosage: 4.5 G EVERY 1 TOT
     Route: 042
     Dates: start: 20080328, end: 20080328
  2. TAZOCIN [Suspect]
     Indication: LOWER RESPIRATORY TRACT INFECTION
  3. DUOVENT [Concomitant]
     Indication: BRONCHIECTASIS
     Dosage: UNKNOWN
     Route: 055
     Dates: start: 20060101
  4. GLUCOSAMINE [Concomitant]
     Indication: ARTHRALGIA
     Dosage: 1 DOSE FORM DAILY
     Route: 048
  5. SERETIDE [Concomitant]
     Route: 055
     Dates: start: 20010425
  6. DESLORATADINE [Concomitant]
     Indication: SEASONAL ALLERGY
     Route: 048
     Dates: start: 20020702
  7. LOTRIDERM [Concomitant]
     Indication: DERMATITIS
     Dosage: TWICE A DAY AS REQUIRED
     Route: 061
     Dates: start: 20060215
  8. GYNO-PEVARYL [Concomitant]
     Indication: VULVOVAGINAL CANDIDIASIS
     Dosage: 150MG, FREQUENCY UNKNOWN
     Route: 067
     Dates: start: 19960318
  9. COMBIVENT [Concomitant]
     Indication: BRONCHIECTASIS
     Route: 055
     Dates: start: 20030923
  10. ACETYLSALICYLIC ACID SRT [Concomitant]
     Indication: PROPHYLAXIS
     Route: 048
     Dates: start: 20000908
  11. SEREVENT [Concomitant]
     Indication: BRONCHIECTASIS
     Dosage: UNKNOWN
     Route: 055
     Dates: start: 20060101

REACTIONS (10)
  - ANAPHYLACTIC REACTION [None]
  - DYSPNOEA [None]
  - ERYTHEMA [None]
  - LOSS OF CONSCIOUSNESS [None]
  - MALAISE [None]
  - PHARYNGEAL OEDEMA [None]
  - PRURITUS [None]
  - SWELLING [None]
  - SWELLING FACE [None]
  - SYNCOPE [None]
